FAERS Safety Report 8815384 (Version 4)
Quarter: 2013Q1

REPORT INFORMATION
  Report Type: Spontaneous
  Country: US (occurrence: US)
  Receive Date: 20120928
  Receipt Date: 20130123
  Transmission Date: 20140127
  Serious: No
  Sender: FDA-Public Use
  Company Number: US-009507513-1208USA012320

PATIENT
  Sex: Female

DRUGS (2)
  1. PEGINTRON [Suspect]
     Indication: HEPATITIS C
     Dosage: REDIPEN
     Dates: start: 20120804, end: 20130112
  2. RIBAVIRIN [Suspect]
     Indication: HEPATITIS C
     Dosage: UNK
     Dates: start: 20120804, end: 20130117

REACTIONS (17)
  - Nausea [Unknown]
  - Pollakiuria [Unknown]
  - Malaise [Unknown]
  - Poor quality sleep [Unknown]
  - Ear infection [Unknown]
  - Nervousness [Unknown]
  - Malaise [Unknown]
  - Pollakiuria [Unknown]
  - Fatigue [Unknown]
  - Thirst [Unknown]
  - Polydipsia [Unknown]
  - Asthenia [Unknown]
  - Abdominal pain [Unknown]
  - Diarrhoea [Unknown]
  - Constipation [Unknown]
  - Decreased appetite [Unknown]
  - Weight decreased [Unknown]
